FAERS Safety Report 19645564 (Version 1)
Quarter: 2021Q3

REPORT INFORMATION
  Report Type: Spontaneous
  Country: KR (occurrence: KR)
  Receive Date: 20210802
  Receipt Date: 20210802
  Transmission Date: 20211014
  Serious: Yes (Hospitalization)
  Sender: FDA-Public Use
  Company Number: KR-LUPIN PHARMACEUTICALS INC.-2021-13447

PATIENT
  Age: 6 Year

DRUGS (5)
  1. AMPICILLIN/SULBACTAM [Suspect]
     Active Substance: AMPICILLIN SODIUM\SULBACTAM SODIUM
     Indication: PNEUMONIA MYCOPLASMAL
     Dosage: UNK
     Route: 065
  2. METHYLPREDNISOLONE. [Suspect]
     Active Substance: METHYLPREDNISOLONE
     Dosage: UNK UNK, QD (10?15 MG/KG/DAY FOR 3 CONSECUTIVE DAYS, IN ADDITION TO LEVOFLOXACIN)
     Route: 065
  3. METHYLPREDNISOLONE. [Suspect]
     Active Substance: METHYLPREDNISOLONE
     Indication: PNEUMONIA MYCOPLASMAL
     Dosage: UNK UNK, QD (1?2MG/KG/DAY (MAXIMUM 30MG/DOSE))
     Route: 065
  4. AZITHROMYCIN ANHYDROUS. [Suspect]
     Active Substance: AZITHROMYCIN ANHYDROUS
     Indication: PNEUMONIA MYCOPLASMAL
     Dosage: UNK
     Route: 065
  5. CEFTRIAXONE. [Suspect]
     Active Substance: CEFTRIAXONE
     Indication: PNEUMONIA MYCOPLASMAL
     Dosage: UNK
     Route: 065

REACTIONS (1)
  - Drug ineffective [Unknown]
